FAERS Safety Report 14169571 (Version 1)
Quarter: 2017Q4

REPORT INFORMATION
  Report Type: Spontaneous
  Country: US (occurrence: US)
  Receive Date: 20171107
  Receipt Date: 20171107
  Transmission Date: 20180321
  Serious: Yes (Hospitalization)
  Sender: FDA-Public Use
  Company Number: None

PATIENT
  Age: 35 Year
  Sex: Female
  Weight: 78.6 kg

DRUGS (3)
  1. OXYCODONE [Concomitant]
     Active Substance: OXYCODONE
  2. GABAPENTIN. [Suspect]
     Active Substance: GABAPENTIN
     Indication: FRACTURE TREATMENT
     Route: 048
     Dates: start: 20171025, end: 20171101
  3. TRAMADOL. [Suspect]
     Active Substance: TRAMADOL
     Indication: FRACTURE TREATMENT
     Route: 048
     Dates: start: 20171025, end: 20171101

REACTIONS (6)
  - Confusional state [None]
  - Hallucination, visual [None]
  - Serotonin syndrome [None]
  - Constipation [None]
  - Myoclonus [None]
  - Muscle spasms [None]

NARRATIVE: CASE EVENT DATE: 20171101
